FAERS Safety Report 10925340 (Version 1)
Quarter: 2015Q1

REPORT INFORMATION
  Report Type: Spontaneous
  Country: US (occurrence: None)
  Receive Date: 20150316
  Receipt Date: 20150316
  Transmission Date: 20150721
  Serious: Yes (Other)
  Sender: FDA-Public Use
  Company Number: None

PATIENT
  Age: 7 Year
  Sex: Female
  Weight: 16.3 kg

DRUGS (1)
  1. INCRELEX [Suspect]
     Active Substance: MECASERMIN
     Indication: BLOOD GROWTH HORMONE
     Route: 058
     Dates: start: 20090601, end: 20150313

REACTIONS (2)
  - Tonsillar hypertrophy [None]
  - Snoring [None]

NARRATIVE: CASE EVENT DATE: 20150310
